FAERS Safety Report 8402484-0 (Version None)
Quarter: 2012Q1

REPORT INFORMATION
  Report Type: 
  Country: None (occurrence: None)
  Receive Date: 20120323
  Receipt Date: 20110531
  Transmission Date: 20120608
  Serious: Yes (Other)
  Sender: FDA-Public Use
  Company Number: 163-21880-11050112

PATIENT
  Age: 61 Year
  Sex: Male

DRUGS (7)
  1. COREG [Concomitant]
  2. REVLIMID [Suspect]
     Indication: MULTIPLE MYELOMA
     Dosage: 25 MG, 1 IN 1 D, PO
     Route: 048
     Dates: start: 20110308, end: 20110329
  3. SEPTRA DS [Concomitant]
  4. SIMVASTATIN [Concomitant]
  5. RED BLOOD CELLS (RED BLOOD CELLS) [Concomitant]
  6. COUMADIN [Concomitant]
  7. LASIC (FUROSEMIDE) [Concomitant]

REACTIONS (1)
  - BONE MARROW FAILURE [None]
